FAERS Safety Report 21332671 (Version 1)
Quarter: 2022Q3

REPORT INFORMATION
  Report Type: Spontaneous
  Country: US (occurrence: None)
  Receive Date: 20220913
  Receipt Date: 20220913
  Transmission Date: 20221027
  Serious: Yes (Life-Threatening, Disabling, Other)
  Sender: FDA-Public Use
  Company Number: None

PATIENT
  Age: 62 Year
  Sex: Female
  Weight: 67.5 kg

DRUGS (3)
  1. DULOXETINE HYDROCHLORIDE [Suspect]
     Active Substance: DULOXETINE HYDROCHLORIDE
     Indication: Anxiety
     Dosage: OTHER QUANTITY : 1 CAPSULE(S);?FREQUENCY : 3 TIMES A DAY;?
     Route: 048
     Dates: end: 20220327
  2. DOXYCYCLINE [Suspect]
     Active Substance: DOXYCYCLINE
  3. synthyroid .88mg [Concomitant]

REACTIONS (31)
  - Muscular weakness [None]
  - Dysstasia [None]
  - Hypokinesia [None]
  - Gait disturbance [None]
  - Weight bearing difficulty [None]
  - Balance disorder [None]
  - Headache [None]
  - Nausea [None]
  - Electric shock sensation [None]
  - Pain in extremity [None]
  - Fatigue [None]
  - Disturbance in attention [None]
  - Memory impairment [None]
  - Vision blurred [None]
  - Tunnel vision [None]
  - Ocular rosacea [None]
  - Anger [None]
  - Depressed mood [None]
  - Emotional distress [None]
  - Crying [None]
  - Depression [None]
  - Anhedonia [None]
  - Withdrawal syndrome [None]
  - Tendonitis [None]
  - Insomnia [None]
  - Arthralgia [None]
  - Paraesthesia [None]
  - Paraesthesia [None]
  - Pain in extremity [None]
  - Mental disorder [None]
  - Adverse drug reaction [None]

NARRATIVE: CASE EVENT DATE: 20220327
